FAERS Safety Report 4828728-X (Version None)
Quarter: 2005Q4

REPORT INFORMATION
  Report Type: 
  Country: None (occurrence: None)
  Receive Date: 20051115
  Receipt Date: 20050930
  Transmission Date: 20060501
  Serious: Yes (Hospitalization)
  Sender: FDA-Public Use
  Company Number: US-MERCK-0510USA01863

PATIENT
  Age: 70 Year
  Sex: Male
  Weight: 82 kg

DRUGS (5)
  1. VIOXX [Suspect]
     Indication: NEURALGIA
     Route: 048
     Dates: start: 20010312, end: 20020507
  2. VIOXX [Suspect]
     Route: 048
     Dates: start: 20010312, end: 20020507
  3. NEURONTIN [Concomitant]
     Route: 065
  4. NORVASC [Concomitant]
     Route: 065
  5. PRILOSEC [Concomitant]
     Route: 065

REACTIONS (4)
  - CEREBROVASCULAR ACCIDENT [None]
  - HAEMORRHOIDS [None]
  - PNEUMONIA [None]
  - SYNCOPE [None]
